FAERS Safety Report 7761724-1 (Version None)
Quarter: 2011Q3

REPORT INFORMATION
  Report Type: 
  Country: None (occurrence: None)
  Receive Date: 20110920
  Receipt Date: 20110912
  Transmission Date: 20111222
  Serious: No
  Sender: FDA-Public Use
  Company Number: PHHY2011US57059

PATIENT
  Sex: Female
  Weight: 116.1 kg

DRUGS (14)
  1. TASIGNA [Suspect]
     Dosage: 3 TABLETS DAILY
  2. TOPROL-XL [Concomitant]
     Dosage: 50 MG, TID
     Route: 048
  3. ZOFRAN [Concomitant]
     Dosage: 8 MG, PRN
     Route: 048
  4. TASIGNA [Suspect]
     Indication: CHRONIC MYELOID LEUKAEMIA
     Dosage: 300 MG, Q12H
     Route: 048
     Dates: start: 20110618
  5. VITAMIN B-12 [Concomitant]
     Route: 048
  6. LABETALOL HYDROCHLORIDE [Concomitant]
     Dosage: 300 MG, BID
     Route: 048
  7. COUMADIN [Concomitant]
     Route: 048
  8. PRADAXA [Concomitant]
     Route: 048
  9. MAGNESIUM [Concomitant]
     Dosage: 250 MG DAILY
     Route: 048
  10. ALDACTONE [Concomitant]
     Dosage: 250 MG, BID
     Route: 048
  11. EDECRIN [Concomitant]
     Dosage: 25 MG, BID
     Route: 048
  12. SYNTHROID [Concomitant]
     Dosage: 1 DF DAILY
     Route: 048
  13. CALTRATE 600 + VITAMIN D [Concomitant]
     Dosage: 1 DF DAILY
     Route: 048
  14. LOMOTIL [Concomitant]
     Route: 048

REACTIONS (6)
  - RASH [None]
  - DRY SKIN [None]
  - PRURITUS [None]
  - BLOOD POTASSIUM INCREASED [None]
  - BLOOD BILIRUBIN INCREASED [None]
  - BLOOD CREATININE INCREASED [None]
